FAERS Safety Report 8444386-X (Version None)
Quarter: 2012Q2

REPORT INFORMATION
  Report Type: 
  Country: None (occurrence: None)
  Receive Date: 20120618
  Receipt Date: 20120613
  Transmission Date: 20120825
  Serious: Yes (Death)
  Sender: FDA-Public Use
  Company Number: US-PFIZER INC-2012143397

PATIENT
  Sex: Male

DRUGS (1)
  1. VFEND [Suspect]
     Indication: HEART TRANSPLANT
     Dosage: 1-200 MG 2XDAY (BID)
     Dates: start: 20111208

REACTIONS (1)
  - DEATH [None]
